FAERS Safety Report 8818834 (Version 1)
Quarter: 2012Q4

REPORT INFORMATION
  Report Type: 
  Country: MX (occurrence: MX)
  Receive Date: 20121001
  Receipt Date: 20121001
  Transmission Date: 20130627
  Serious: Yes (Other)
  Sender: FDA-Public Use
  Company Number: PHHY2012MX084693

PATIENT
  Age: 44 Year
  Sex: Female

DRUGS (1)
  1. TRILEPTAL [Suspect]
     Indication: EPILEPSY
     Dosage: 600 mg, UNK

REACTIONS (3)
  - Taeniasis [Unknown]
  - Speech disorder developmental [Unknown]
  - Aphasia [Unknown]
